FAERS Safety Report 22055086 (Version 1)
Quarter: 2023Q1

REPORT INFORMATION
  Report Type: Spontaneous
  Country: US (occurrence: None)
  Receive Date: 20230301
  Receipt Date: 20230301
  Transmission Date: 20230417
  Serious: No
  Sender: FDA-Public Use
  Company Number: None

PATIENT
  Age: 50 Year
  Sex: Female

DRUGS (3)
  1. LUPRON [Suspect]
     Active Substance: LEUPROLIDE ACETATE
     Indication: Uterine leiomyoma
     Dosage: OTHER FREQUENCY : MONTHLY;?OTHER ROUTE : INJECTION;?
     Route: 050
  2. LOSARTAN [Concomitant]
     Active Substance: LOSARTAN
  3. SYNTHROID [Concomitant]
     Active Substance: LEVOTHYROXINE SODIUM

REACTIONS (6)
  - Pain in extremity [None]
  - Movement disorder [None]
  - Neuralgia [None]
  - Pain [None]
  - Blepharospasm [None]
  - Disturbance in attention [None]

NARRATIVE: CASE EVENT DATE: 20230108
